FAERS Safety Report 10798233 (Version 3)
Quarter: 2015Q2

REPORT INFORMATION
  Report Type: Spontaneous
  Country: US (occurrence: US)
  Receive Date: 20150216
  Receipt Date: 20150526
  Transmission Date: 20150821
  Serious: No
  Sender: FDA-Public Use
  Company Number: US-PFIZER INC-2015056852

PATIENT
  Age: 50 Year
  Sex: Male
  Weight: 91 kg

DRUGS (4)
  1. CELECOXIB. [Suspect]
     Active Substance: CELECOXIB
     Indication: ARTHROFIBROSIS
     Dosage: 200 MG, 2X/DAY
     Dates: start: 20150115, end: 20150123
  2. CELECOXIB. [Suspect]
     Active Substance: CELECOXIB
     Indication: JOINT SWELLING
  3. OXYCODONE/PARACETAMOL [Concomitant]
     Dosage: 10/325: ONE TABLET EVERY FOUR HOURS DURING WAKING HOURS
     Dates: start: 20141201
  4. CELECOXIB. [Suspect]
     Active Substance: CELECOXIB
     Indication: KNEE ARTHROPLASTY

REACTIONS (1)
  - Haematuria [Recovered/Resolved]

NARRATIVE: CASE EVENT DATE: 20150208
